FAERS Safety Report 20746404 (Version 1)
Quarter: 2022Q2

REPORT INFORMATION
  Report Type: Spontaneous
  Country: US (occurrence: None)
  Receive Date: 20220425
  Receipt Date: 20220425
  Transmission Date: 20220720
  Serious: Yes (Disabling, Other)
  Sender: FDA-Public Use
  Company Number: None

PATIENT
  Age: 39 Year
  Sex: Female
  Weight: 67.5 kg

DRUGS (1)
  1. DEXTROAMPHETAMINE [Suspect]
     Active Substance: DEXTROAMPHETAMINE
     Indication: Attention deficit hyperactivity disorder
     Dosage: OTHER QUANTITY : 1 TABLET(S);?FREQUENCY : 3 TIMES A DAY;?
     Route: 048
     Dates: start: 20220412

REACTIONS (7)
  - Condition aggravated [None]
  - Product substitution issue [None]
  - Attention deficit hyperactivity disorder [None]
  - Loss of personal independence in daily activities [None]
  - Nausea [None]
  - Dizziness [None]
  - Impaired work ability [None]

NARRATIVE: CASE EVENT DATE: 20220418
